FAERS Safety Report 6765572-0 (Version None)
Quarter: 2010Q2

REPORT INFORMATION
  Report Type: 
  Country: None (occurrence: None)
  Receive Date: 20100609
  Receipt Date: 20100526
  Transmission Date: 20101027
  Serious: Yes (Other)
  Sender: FDA-Public Use
  Company Number: 7004604

PATIENT
  Age: 32 Year
  Sex: Female
  Weight: 58 kg

DRUGS (2)
  1. REBIF [Suspect]
     Indication: MULTIPLE SCLEROSIS
     Dosage: 0.8, 3 IN 1 WK, SUBCUTANEOUS
     Route: 058
     Dates: start: 20091207, end: 20100503
  2. LAMICTAL [Concomitant]

REACTIONS (3)
  - DISORIENTATION [None]
  - FALL [None]
  - GRAND MAL CONVULSION [None]
